FAERS Safety Report 10610560 (Version 2)
Quarter: 2015Q1

REPORT INFORMATION
  Report Type: Report from Study
  Country: AU (occurrence: AU)
  Receive Date: 20141126
  Receipt Date: 20150122
  Transmission Date: 20150720
  Serious: Yes (Hospitalization, Other)
  Sender: FDA-Public Use
  Company Number: AU-ROCHE-1494718

PATIENT
  Age: 84 Year
  Sex: Female

DRUGS (1)
  1. LUCENTIS [Suspect]
     Active Substance: RANIBIZUMAB
     Indication: AGE-RELATED MACULAR DEGENERATION
     Dosage: SHE RECEIVED MOST RECENT DOSE ON 01/MAY/2012, IN BOTH EYES
     Route: 050
     Dates: start: 2010

REACTIONS (3)
  - Eye infection [Recovered/Resolved]
  - Blindness transient [Recovered/Resolved]
  - Ocular hyperaemia [Recovered/Resolved]

NARRATIVE: CASE EVENT DATE: 20120504
